FAERS Safety Report 23940019 (Version 1)
Quarter: 2024Q2

REPORT INFORMATION
  Report Type: Other
  Country: US (occurrence: None)
  Receive Date: 20240605
  Receipt Date: 20240605
  Transmission Date: 20240716
  Serious: No
  Sender: FDA-Public Use
  Company Number: US-ROCHE-3574704

PATIENT
  Age: 43 Year
  Sex: Female
  Weight: 76.9 kg

DRUGS (11)
  1. ENSPRYNG [Suspect]
     Active Substance: SATRALIZUMAB-MWGE
     Indication: Neuromyelitis optica spectrum disorder
     Route: 058
     Dates: start: 20211104
  2. TYLENOL [Concomitant]
     Active Substance: ACETAMINOPHEN
  3. XANAX [Concomitant]
     Active Substance: ALPRAZOLAM
  4. COREG [Concomitant]
     Active Substance: CARVEDILOL
  5. CYANOCOBALAMIN [Concomitant]
     Active Substance: CYANOCOBALAMIN
  6. NEURONTIN [Concomitant]
     Active Substance: GABAPENTIN
  7. ZOFRAN [Concomitant]
     Active Substance: ONDANSETRON HYDROCHLORIDE
  8. FLOMAX [Concomitant]
     Active Substance: TAMSULOSIN HYDROCHLORIDE
  9. ZYRTEC [Concomitant]
     Active Substance: CETIRIZINE HYDROCHLORIDE
  10. ZOLPIDEM [Concomitant]
     Active Substance: ZOLPIDEM TARTRATE
  11. CLARITIN [Concomitant]
     Active Substance: LORATADINE

REACTIONS (14)
  - Pain in extremity [Unknown]
  - Back pain [Unknown]
  - Upper respiratory tract infection [Unknown]
  - Urinary hesitation [Unknown]
  - Flushing [Unknown]
  - Blood fibrinogen decreased [Unknown]
  - COVID-19 [Unknown]
  - Hypertension [Unknown]
  - Vitamin D deficiency [Unknown]
  - Vitamin B12 deficiency [Unknown]
  - Generalised anxiety disorder [Unknown]
  - Breast hyperplasia [Unknown]
  - Mammogram abnormal [Unknown]
  - Hepatic steatosis [Unknown]
